FAERS Safety Report 14172678 (Version 1)
Quarter: 2017Q4

REPORT INFORMATION
  Report Type: Spontaneous
  Country: US (occurrence: US)
  Receive Date: 20171108
  Receipt Date: 20171108
  Transmission Date: 20180321
  Serious: Yes (Other)
  Sender: FDA-Public Use
  Company Number: None

PATIENT
  Age: 88 Year
  Sex: Male
  Weight: 78.75 kg

DRUGS (4)
  1. FIBER GUMMIES [Concomitant]
  2. NORCO [Suspect]
     Active Substance: ACETAMINOPHEN\HYDROCODONE BITARTRATE
     Indication: PAIN
     Route: 048
     Dates: start: 20171106, end: 20171106
  3. NORCO [Suspect]
     Active Substance: ACETAMINOPHEN\HYDROCODONE BITARTRATE
     Indication: FALL
     Route: 048
     Dates: start: 20171106, end: 20171106
  4. VITAMINS [Concomitant]
     Active Substance: VITAMINS

REACTIONS (7)
  - Delirium [None]
  - Mobility decreased [None]
  - Hyperhidrosis [None]
  - Dizziness [None]
  - Cold sweat [None]
  - Fear [None]
  - Loss of personal independence in daily activities [None]

NARRATIVE: CASE EVENT DATE: 20171106
